FAERS Safety Report 15320941 (Version 1)
Quarter: 2018Q3

REPORT INFORMATION
  Report Type: Spontaneous
  Country: US (occurrence: US)
  Receive Date: 20180827
  Receipt Date: 20180827
  Transmission Date: 20181010
  Serious: Yes (Hospitalization, Other)
  Sender: FDA-Public Use
  Company Number: US-BIOGEN-2014BI135372

PATIENT
  Age: 64 Year
  Sex: Female
  Weight: 90.8 kg

DRUGS (5)
  1. TECFIDERA [Suspect]
     Active Substance: DIMETHYL FUMARATE
     Indication: MULTIPLE SCLEROSIS
     Route: 065
     Dates: start: 20141104
  2. TECFIDERA [Suspect]
     Active Substance: DIMETHYL FUMARATE
     Route: 048
     Dates: start: 20141115, end: 20141123
  3. TECFIDERA [Suspect]
     Active Substance: DIMETHYL FUMARATE
     Route: 065
     Dates: end: 20151015
  4. TECFIDERA [Suspect]
     Active Substance: DIMETHYL FUMARATE
     Route: 048
     Dates: start: 20141109
  5. AVONEX [Suspect]
     Active Substance: INTERFERON BETA-1A
     Indication: MULTIPLE SCLEROSIS
     Route: 065
     Dates: start: 20120710, end: 20141104

REACTIONS (11)
  - Paraplegia [Unknown]
  - Multiple sclerosis [Not Recovered/Not Resolved]
  - Dysphagia [Unknown]
  - Vomiting [Unknown]
  - Diplopia [Unknown]
  - Subarachnoid haemorrhage [Recovered/Resolved]
  - Blindness unilateral [Unknown]
  - Seizure [Unknown]
  - Headache [Unknown]
  - Tooth fracture [Unknown]
  - Cardiac arrest [Unknown]

NARRATIVE: CASE EVENT DATE: 201411
